FAERS Safety Report 18582170 (Version 1)
Quarter: 2020Q4

REPORT INFORMATION
  Report Type: Spontaneous
  Country: JP (occurrence: JP)
  Receive Date: 20201205
  Receipt Date: 20201205
  Transmission Date: 20210114
  Serious: Yes (Hospitalization)
  Sender: FDA-Public Use
  Company Number: JP-LUPIN PHARMACEUTICALS INC.-2020-09813

PATIENT
  Age: 16 Month
  Sex: Male

DRUGS (9)
  1. RIFAMPIN. [Suspect]
     Active Substance: RIFAMPIN
     Indication: DISSEMINATED BACILLUS CALMETTE-GUERIN INFECTION
     Dosage: 35 MILLIGRAM/KILOGRAM, QD
     Route: 048
  2. ISONIAZID. [Suspect]
     Active Substance: ISONIAZID
     Indication: DISSEMINATED BACILLUS CALMETTE-GUERIN INFECTION
     Dosage: 20 MILLIGRAM/KILOGRAM, QD
     Route: 048
  3. PYRAZINAMIDE. [Concomitant]
     Active Substance: PYRAZINAMIDE
     Indication: DISSEMINATED BACILLUS CALMETTE-GUERIN INFECTION
     Dosage: 20 MILLIGRAM/KILOGRAM, QD
     Route: 048
  4. AMIKACIN. [Concomitant]
     Active Substance: AMIKACIN
     Indication: DISSEMINATED BACILLUS CALMETTE-GUERIN INFECTION
     Dosage: 20 MILLIGRAM/KILOGRAM
     Route: 042
  5. METHYLPREDNISOLONE. [Concomitant]
     Active Substance: METHYLPREDNISOLONE
     Indication: NEUROSARCOIDOSIS
     Dosage: 30 MILLIGRAM/KILOGRAM, QD (THREE DOSES PER WEEK FOR THREE WEEKS)
     Route: 065
  6. PREDNISOLONE. [Concomitant]
     Active Substance: PREDNISOLONE
     Dosage: 2 MILLIGRAM/KILOGRAM, QD
     Route: 048
  7. PREDNISOLONE. [Concomitant]
     Active Substance: PREDNISOLONE
     Indication: NEUROSARCOIDOSIS
     Dosage: 1 MILLIGRAM/KILOGRAM, QD
     Route: 048
  8. INFLIXIMAB [Concomitant]
     Active Substance: INFLIXIMAB
     Indication: NEUROSARCOIDOSIS
     Dosage: 5 MILLIGRAM/KILOGRAM (GIVEN ON DAY 74 AND 96 AFTER ADMISSION)
     Route: 065
  9. METHOTREXATE. [Concomitant]
     Active Substance: METHOTREXATE
     Indication: NEUROSARCOIDOSIS
     Dosage: 10 MILLIGRAM/SQ. METER
     Route: 048

REACTIONS (1)
  - Drug hypersensitivity [Unknown]
